FAERS Safety Report 4386292-6 (Version None)
Quarter: 2004Q2

REPORT INFORMATION
  Report Type: 
  Country: None (occurrence: None)
  Receive Date: 20040622
  Receipt Date: 20040607
  Transmission Date: 20050107
  Serious: Yes (Hospitalization)
  Sender: FDA-Public Use
  Company Number: 2004-0007113

PATIENT
  Age: 43 Year
  Sex: Male
  Weight: 64 kg

DRUGS (5)
  1. EMTRICITABINE (EMTRICITABINE) [Suspect]
     Indication: HIV INFECTION
     Dosage: 200 MG, ORAL
     Route: 048
     Dates: start: 20021125
  2. TENOFOVIR DISOPROXIL FUMARATE (TENOFOVIR DISOPROXIL FUMARATE) [Suspect]
     Indication: HIV INFECTION
     Dosage: 300 MG, ORAL
     Route: 048
     Dates: start: 20051125
  3. KALETRA [Suspect]
     Indication: HIV INFECTION
     Dates: start: 20021125
  4. BACTRIM [Concomitant]
  5. LOMOTIL [Concomitant]

REACTIONS (5)
  - BLOOD ALKALINE PHOSPHATASE INCREASED [None]
  - BRONCHITIS [None]
  - GAMMA-GLUTAMYLTRANSFERASE INCREASED [None]
  - MYALGIA [None]
  - VIRAL UPPER RESPIRATORY TRACT INFECTION [None]
